FAERS Safety Report 7540934-2 (Version None)
Quarter: 2011Q2

REPORT INFORMATION
  Report Type: 
  Country: None (occurrence: None)
  Receive Date: 20110610
  Receipt Date: 20110609
  Transmission Date: 20111010
  Serious: Yes (Life-Threatening, Hospitalization)
  Sender: FDA-Public Use
  Company Number: JP-B.I. PHARMACEUTICALS,INC./RIDGEFIELD-2011-BP-13501NB

PATIENT
  Age: 74 Year
  Sex: Female

DRUGS (8)
  1. DIOVAN [Suspect]
     Indication: HYPERTENSION
     Dosage: 160 MG
     Route: 048
     Dates: start: 20110421, end: 20110519
  2. NORVASC [Suspect]
     Indication: HYPERTENSION
     Route: 048
  3. DEPAS [Concomitant]
     Indication: INSOMNIA
     Route: 065
  4. PRADAXA [Suspect]
     Indication: ATRIAL FIBRILLATION
     Dosage: 220 MG
     Route: 048
     Dates: start: 20110423, end: 20110519
  5. METOPROLOL TARTRATE [Suspect]
     Indication: HYPERTENSION
     Route: 048
  6. CELESTAMINE TAB [Concomitant]
     Indication: PRURITUS
     Route: 065
     Dates: start: 20110421, end: 20110519
  7. ZOLPIDEM [Concomitant]
     Indication: INSOMNIA
     Route: 065
  8. ADOFEED [Concomitant]
     Route: 065

REACTIONS (2)
  - FALL [None]
  - SUBDURAL HAEMATOMA [None]
